FAERS Safety Report 5525116-8 (Version None)
Quarter: 2007Q4

REPORT INFORMATION
  Report Type: 
  Country: None (occurrence: None)
  Receive Date: 20071119
  Receipt Date: 20071114
  Transmission Date: 20080405
  Serious: Yes (Other)
  Sender: FDA-Public Use
  Company Number: 2007SP019923

PATIENT
  Age: 55 Year
  Sex: Female

DRUGS (8)
  1. TEMODAR [Suspect]
     Indication: GLIOBLASTOMA MULTIFORME
     Dosage: 120 MG; QD; PO
     Route: 048
  2. DECADRON [Concomitant]
  3. ZYPREXA [Concomitant]
  4. LAMICTAL [Concomitant]
  5. INSULIN [Concomitant]
  6. COLACE [Concomitant]
  7. NEXIUM [Concomitant]
  8. MIRALAX [Concomitant]

REACTIONS (2)
  - PANCYTOPENIA [None]
  - THROMBOCYTOPENIA [None]
